FAERS Safety Report 7387995-1 (Version None)
Quarter: 2011Q2

REPORT INFORMATION
  Report Type: 
  Country: None (occurrence: None)
  Receive Date: 20110401
  Receipt Date: 20110322
  Transmission Date: 20111010
  Serious: Yes (Hospitalization, Other)
  Sender: FDA-Public Use
  Company Number: FR-TEVA-267804ISR

PATIENT
  Sex: Female

DRUGS (3)
  1. COPAXONE [Suspect]
     Indication: MULTIPLE SCLEROSIS
     Route: 058
     Dates: start: 20100501, end: 20110108
  2. PREDNISOLONE SODIUM SULFOBENZOATE [Concomitant]
     Indication: SARCOIDOSIS
     Route: 048
     Dates: start: 20100401, end: 20101201
  3. CLONAZEPAM [Concomitant]
     Indication: NEURALGIA
     Route: 048
     Dates: start: 20100701

REACTIONS (9)
  - HYPOTENSION [None]
  - LOSS OF CONSCIOUSNESS [None]
  - TACHYCARDIA [None]
  - URTICARIA [None]
  - HYPERSENSITIVITY [None]
  - MALAISE [None]
  - ABDOMINAL PAIN [None]
  - DYSPNOEA [None]
  - ANXIETY [None]
